FAERS Safety Report 4766380-2 (Version None)
Quarter: 2005Q3

REPORT INFORMATION
  Report Type: 
  Country: None (occurrence: None)
  Receive Date: 20050912
  Receipt Date: 20050829
  Transmission Date: 20060218
  Serious: Yes (Other)
  Sender: FDA-Public Use
  Company Number: 2005AC01265

PATIENT
  Sex: Female

DRUGS (3)
  1. NOLVADEX [Suspect]
     Indication: BREAST CANCER
     Route: 048
     Dates: start: 20050122
  2. EPHYNAL [Concomitant]
     Indication: MEDICAL DIET
  3. STILNOCT [Concomitant]
     Indication: SLEEP DISORDER

REACTIONS (2)
  - EYE IRRITATION [None]
  - PSORIASIS [None]
